FAERS Safety Report 4401087-2 (Version None)
Quarter: 2004Q3

REPORT INFORMATION
  Report Type: 
  Country: None (occurrence: None)
  Receive Date: 20040907
  Receipt Date: 20031023
  Transmission Date: 20050211
  Serious: No
  Sender: FDA-Public Use
  Company Number: US-BRISTOL-MYERS SQUIBB COMPANY-12418166

PATIENT
  Age: 68 Year
  Sex: Female
  Weight: 69 kg

DRUGS (6)
  1. COUMADIN [Suspect]
     Indication: ATRIAL FIBRILLATION
     Dosage: DOSE VARIES.  CURRENT DOSE IS 3 MG DAILY.
     Route: 048
     Dates: start: 20030513, end: 20031020
  2. DILTIAZEM HCL [Concomitant]
  3. ZOCOR [Concomitant]
  4. FOSAMAX [Concomitant]
  5. SYNTHROID [Concomitant]
  6. ZESTRIL [Concomitant]

REACTIONS (1)
  - PRURITUS [None]
